FAERS Safety Report 13798796 (Version 1)
Quarter: 2017Q3

REPORT INFORMATION
  Report Type: Spontaneous
  Country: US (occurrence: US)
  Receive Date: 20170727
  Receipt Date: 20170727
  Transmission Date: 20171127
  Serious: No
  Sender: FDA-Public Use
  Company Number: US-JNJFOC-20170705297

PATIENT
  Age: 64 Year
  Sex: Female
  Weight: 62.6 kg

DRUGS (6)
  1. WOMENS ROGAINE UNSCENTED [Suspect]
     Active Substance: MINOXIDIL
     Indication: ALOPECIA
     Dosage: DOSE: 1/2 CAPFUL
     Route: 061
     Dates: start: 201705
  2. CITRACAL [Concomitant]
     Active Substance: CALCIUM CITRATE
     Indication: ROUTINE HEALTH MAINTENANCE
     Dosage: 1200MG100IUD3.
     Route: 065
  3. VIVISCAL [Concomitant]
     Indication: HAIR GROWTH ABNORMAL
     Dosage: THERAPY DURATION: 1 MONTH
     Route: 065
  4. FISH OIL OMEGA 3 [Concomitant]
     Active Substance: FISH OIL
     Indication: BLOOD CHOLESTEROL
     Dosage: 1200MG/900MG-1PERDAY??1.5 YEARS
     Route: 065
  5. WOMENS ROGAINE UNSCENTED [Suspect]
     Active Substance: MINOXIDIL
     Route: 061
  6. VITAMIN B12 [Concomitant]
     Active Substance: CYANOCOBALAMIN
     Indication: BLOOD IRON DECREASED
     Dosage: THERAPY DURATION: 1.5 YEARS. DOSE: 2500MCG
     Route: 065

REACTIONS (1)
  - Hair colour changes [Recovered/Resolved]

NARRATIVE: CASE EVENT DATE: 20170626
